FAERS Safety Report 7304412-8 (Version None)
Quarter: 2011Q1

REPORT INFORMATION
  Report Type: 
  Country: None (occurrence: None)
  Receive Date: 20110221
  Receipt Date: 20110216
  Transmission Date: 20110831
  Serious: Yes (Death, Hospitalization)
  Sender: FDA-Public Use
  Company Number: FR-ASTRAZENECA-2010SE57639

PATIENT
  Age: 75 Year
  Sex: Female

DRUGS (6)
  1. ASPIRIN [Concomitant]
     Route: 048
  2. IRESSA [Suspect]
     Indication: LUNG ADENOCARCINOMA
     Route: 048
     Dates: start: 20100420, end: 20100824
  3. CRESTOR [Concomitant]
     Indication: HYPERCHOLESTEROLAEMIA
     Route: 048
  4. DOXYCYCLINE [Concomitant]
     Indication: ACNE
     Route: 048
     Dates: start: 20100420, end: 20100801
  5. INIPOMP [Concomitant]
     Route: 048
  6. SEROPLEX [Concomitant]
     Indication: DEPRESSION
     Route: 048

REACTIONS (1)
  - CREUTZFELDT-JAKOB DISEASE [None]
